FAERS Safety Report 25738471 (Version 1)
Quarter: 2025Q3

REPORT INFORMATION
  Report Type: Spontaneous
  Country: EU (occurrence: EU)
  Receive Date: 20250829
  Receipt Date: 20250829
  Transmission Date: 20251020
  Serious: Yes (Hospitalization)
  Sender: BAUSCH AND LOMB
  Company Number: EU-BAUSCH-BH-2025-016683

PATIENT
  Age: 47 Year
  Sex: Male

DRUGS (1)
  1. PENICILLAMINE [Suspect]
     Active Substance: PENICILLAMINE
     Indication: Hepato-lenticular degeneration
     Route: 065

REACTIONS (2)
  - Interstitial lung disease [Unknown]
  - Obliterative bronchiolitis [Unknown]
